FAERS Safety Report 8822996 (Version 1)
Quarter: 2012Q4

REPORT INFORMATION
  Report Type: 
  Country: US (occurrence: US)
  Receive Date: 20121003
  Receipt Date: 20121003
  Transmission Date: 20130627
  Serious: Yes (Hospitalization, Other)
  Sender: FDA-Public Use
  Company Number: US-009507513-2010SP026331

PATIENT

DRUGS (3)
  1. NUVARING [Suspect]
     Indication: CONTRACEPTION
     Dates: start: 20070531, end: 200809
  2. SEROQUEL [Suspect]
     Indication: ANXIETY
     Dates: start: 2008, end: 2008
  3. SEROQUEL [Suspect]
     Indication: DEPRESSION

REACTIONS (16)
  - Bipolar disorder [Unknown]
  - Pulmonary embolism [Recovering/Resolving]
  - Pulmonary infarction [Unknown]
  - Deep vein thrombosis [Recovered/Resolved with Sequelae]
  - Glucose tolerance impaired [Not Recovered/Not Resolved]
  - Sinus disorder [Unknown]
  - Seasonal allergy [Unknown]
  - Dyspepsia [Unknown]
  - Snoring [Unknown]
  - Ligament sprain [Unknown]
  - Hydronephrosis [Unknown]
  - Calculus ureteric [Not Recovered/Not Resolved]
  - Pleural effusion [Unknown]
  - Malaise [Unknown]
  - Weight increased [Unknown]
  - Pollakiuria [Unknown]
